FAERS Safety Report 10947122 (Version 2)
Quarter: 2015Q2

REPORT INFORMATION
  Report Type: Spontaneous
  Country: US (occurrence: US)
  Receive Date: 20150321
  Receipt Date: 20150525
  Transmission Date: 20150821
  Serious: No
  Sender: FDA-Public Use
  Company Number: US-JNJFOC-20140903766

PATIENT

DRUGS (2)
  1. TOPIRAMATE. [Suspect]
     Active Substance: TOPIRAMATE
     Indication: POST-TRAUMATIC STRESS DISORDER
     Route: 065
  2. TOPIRAMATE. [Suspect]
     Active Substance: TOPIRAMATE
     Indication: ALCOHOL ABUSE
     Route: 065

REACTIONS (8)
  - Decreased appetite [Unknown]
  - Dysgeusia [Unknown]
  - Cognitive disorder [Unknown]
  - Diarrhoea [Unknown]
  - Somnolence [Unknown]
  - Pruritus [Unknown]
  - Product use issue [Unknown]
  - Visual impairment [Unknown]
